FAERS Safety Report 17762358 (Version 4)
Quarter: 2020Q4

REPORT INFORMATION
  Report Type: Report from Study
  Country: CA (occurrence: CA)
  Receive Date: 20200508
  Receipt Date: 20201222
  Transmission Date: 20210113
  Serious: Yes (Hospitalization)
  Sender: FDA-Public Use
  Company Number: CA-JNJFOC-20200500056

PATIENT
  Age: 63 Year
  Sex: Female
  Weight: 89 kg

DRUGS (5)
  1. STELARA [Suspect]
     Active Substance: USTEKINUMAB
     Indication: CROHN^S DISEASE
     Dosage: THE PATIENT RECEIVED 3RD 90 MG DOSE ON 30/JUN/2020 AND 5TH 90 MG DOSE ON 05/OCT/2020 AND COMPLETED P
     Route: 058
     Dates: start: 20200305
  2. STELARA [Suspect]
     Active Substance: USTEKINUMAB
     Route: 058
     Dates: start: 20201005
  3. STELARA [Suspect]
     Active Substance: USTEKINUMAB
     Route: 058
  4. PREDNISONE. [Concomitant]
     Active Substance: PREDNISONE
     Indication: PRODUCT USED FOR UNKNOWN INDICATION
     Route: 048
  5. OXYGEN. [Concomitant]
     Active Substance: OXYGEN
     Indication: OXYGEN THERAPY
     Route: 065

REACTIONS (6)
  - Product use issue [Unknown]
  - Frequent bowel movements [Unknown]
  - Hospitalisation [Unknown]
  - Pyrexia [Unknown]
  - Diarrhoea [Unknown]
  - Off label use [Unknown]

NARRATIVE: CASE EVENT DATE: 20200625
